FAERS Safety Report 25839564 (Version 2)
Quarter: 2025Q4

REPORT INFORMATION
  Report Type: Spontaneous
  Country: US (occurrence: US)
  Receive Date: 20250924
  Receipt Date: 20251222
  Transmission Date: 20260118
  Serious: Yes (Other)
  Sender: ACCORD
  Company Number: US-MLMSERVICE-20250908-PI638647-00162-1

PATIENT
  Age: 32 Year
  Sex: Female

DRUGS (6)
  1. FUROSEMIDE [Suspect]
     Active Substance: FUROSEMIDE
     Indication: Peripheral swelling
     Route: 048
  2. METOPROLOL [Concomitant]
     Active Substance: METOPROLOL
  3. MYCOPHENOLIC ACID [Concomitant]
     Active Substance: MYCOPHENOLIC ACID
  4. NIFEDIPINE [Concomitant]
     Active Substance: NIFEDIPINE
  5. POTASSIUM [Concomitant]
     Active Substance: POTASSIUM
     Indication: Peripheral swelling
  6. PREDNISONE [Concomitant]
     Active Substance: PREDNISONE

REACTIONS (6)
  - Hypocalcaemia [Recovering/Resolving]
  - Hypomagnesaemia [Unknown]
  - Vision blurred [Unknown]
  - Hypophagia [Unknown]
  - Sinus tachycardia [Unknown]
  - Ventricular extrasystoles [Unknown]
